FAERS Safety Report 11742040 (Version 1)
Quarter: 2015Q4

REPORT INFORMATION
  Report Type: Spontaneous
  Country: US (occurrence: US)
  Receive Date: 20151116
  Receipt Date: 20151116
  Transmission Date: 20160304
  Serious: No
  Sender: FDA-Public Use
  Company Number: US-PFIZER INC-2015371974

PATIENT
  Age: 52 Year
  Sex: Female
  Weight: 90.7 kg

DRUGS (1)
  1. IBUPROFEN. [Suspect]
     Active Substance: IBUPROFEN
     Indication: BACK DISORDER
     Dosage: UNK

REACTIONS (2)
  - Abdominal discomfort [Unknown]
  - Product use issue [Unknown]
